FAERS Safety Report 26117140 (Version 1)
Quarter: 2025Q4

REPORT INFORMATION
  Report Type: Spontaneous
  Country: US (occurrence: None)
  Receive Date: 20251202
  Receipt Date: 20251202
  Transmission Date: 20260118
  Serious: Yes (Disabling)
  Sender: FDA-CTU
  Company Number: None

PATIENT
  Age: 54 Year
  Weight: 67.5 kg

DRUGS (9)
  1. ZIPRASIDONE [Suspect]
     Active Substance: ZIPRASIDONE
     Indication: Bipolar disorder
     Dosage: OTHER QUANTITY : 2 CAPSULE(S);?FREQUENCY : TWICE A DAY;?
     Route: 048
  2. Celxia [Concomitant]
  3. XANAX [Concomitant]
     Active Substance: ALPRAZOLAM
  4. GEODON [Concomitant]
     Active Substance: ZIPRASIDONE HYDROCHLORIDE\ZIPRASIDONE MESYLATE
  5. restrooms [Concomitant]
  6. PROPRANOLOL [Concomitant]
     Active Substance: PROPRANOLOL HYDROCHLORIDE
  7. FLUPHENAZINE [Concomitant]
     Active Substance: FLUPHENAZINE
  8. AUSTEDO [Concomitant]
     Active Substance: DEUTETRABENAZINE
  9. OMEPRAZOLE [Concomitant]
     Active Substance: OMEPRAZOLE

REACTIONS (1)
  - Akathisia [None]

NARRATIVE: CASE EVENT DATE: 20180803
